FAERS Safety Report 15134669 (Version 3)
Quarter: 2018Q3

REPORT INFORMATION
  Report Type: Spontaneous
  Country: US (occurrence: US)
  Receive Date: 20180712
  Receipt Date: 20180827
  Transmission Date: 20181010
  Serious: Yes (Other)
  Sender: FDA-Public Use
  Company Number: US-PERRIGO-18US007075

PATIENT
  Age: 60 Year
  Sex: Female
  Weight: 84.35 kg

DRUGS (4)
  1. TRPL ANTIBIOTIC OINT 067 [Suspect]
     Active Substance: BACITRACIN ZINC\NEOMYCIN\NEOMYCIN SULFATE\POLYMYXIN B SULFATE
     Indication: RASH
  2. TRPL ANTIBIOTIC OINT 067 [Suspect]
     Active Substance: BACITRACIN ZINC\NEOMYCIN\NEOMYCIN SULFATE\POLYMYXIN B SULFATE
     Indication: ARTHROPOD BITE
  3. IMURAN [Concomitant]
     Active Substance: AZATHIOPRINE
     Indication: RHEUMATOID ARTHRITIS
     Dosage: UNKNOWN, UNKNOWN
     Route: 065
     Dates: start: 2015
  4. TRPL ANTIBIOTIC OINT 067 [Suspect]
     Active Substance: BACITRACIN ZINC\NEOMYCIN\NEOMYCIN SULFATE\POLYMYXIN B SULFATE
     Indication: CELLULITIS
     Dosage: 1 APPLICATION, TO EACH CALF AND BUG BITES
     Route: 061
     Dates: start: 20180518, end: 20180518

REACTIONS (6)
  - Skin erosion [Not Recovered/Not Resolved]
  - Application site wound [Not Recovered/Not Resolved]
  - Application site vesicles [Not Recovered/Not Resolved]
  - Application site ulcer [Not Recovered/Not Resolved]
  - Application site pain [Not Recovered/Not Resolved]
  - Application site discharge [Not Recovered/Not Resolved]

NARRATIVE: CASE EVENT DATE: 20180518
